FAERS Safety Report 12468111 (Version 3)
Quarter: 2016Q2

REPORT INFORMATION
  Report Type: Spontaneous
  Country: CA (occurrence: CA)
  Receive Date: 20160615
  Receipt Date: 20160624
  Transmission Date: 20160815
  Serious: Yes (Hospitalization, Other)
  Sender: FDA-Public Use
  Company Number: CA-PFIZER INC-2016296957

PATIENT
  Age: 47 Year
  Sex: Female

DRUGS (3)
  1. BUPROPION. [Concomitant]
     Active Substance: BUPROPION
     Dosage: UNK
     Dates: start: 2003
  2. NABILONE [Concomitant]
     Active Substance: NABILONE
     Dosage: UNK
     Dates: start: 201506
  3. LYRICA [Suspect]
     Active Substance: PREGABALIN
     Indication: FIBROMYALGIA
     Dosage: 150MG ONCE A DAY AND 300MG ONCE A DAY
     Dates: start: 201408, end: 20160505

REACTIONS (7)
  - Pain [Not Recovered/Not Resolved]
  - Acute stress disorder [Recovered/Resolved]
  - Depressed mood [Not Recovered/Not Resolved]
  - Crying [Unknown]
  - Emotional distress [Not Recovered/Not Resolved]
  - Insomnia [Not Recovered/Not Resolved]
  - Suicidal ideation [Not Recovered/Not Resolved]

NARRATIVE: CASE EVENT DATE: 201509
